FAERS Safety Report 15165515 (Version 4)
Quarter: 2018Q3

REPORT INFORMATION
  Report Type: Spontaneous
  Country: FR (occurrence: FR)
  Receive Date: 20180719
  Receipt Date: 20180913
  Transmission Date: 20181010
  Serious: Yes (Hospitalization, Other)
  Sender: FDA-Public Use
  Company Number: FR-SA-2018SA194921

PATIENT
  Age: 45 Year
  Sex: Female

DRUGS (2)
  1. AUBAGIO [Suspect]
     Active Substance: TERIFLUNOMIDE
     Indication: MULTIPLE SCLEROSIS
     Dosage: 14 MG, QD
     Route: 048
     Dates: start: 201511, end: 20171201
  2. AUBAGIO [Suspect]
     Active Substance: TERIFLUNOMIDE
     Indication: RELAPSING-REMITTING MULTIPLE SCLEROSIS

REACTIONS (6)
  - Breast cancer [Not Recovered/Not Resolved]
  - Paraesthesia [Unknown]
  - Pruritus [Recovered/Resolved]
  - Multiple sclerosis relapse [Unknown]
  - Rash [Unknown]
  - Hypertension [Unknown]

NARRATIVE: CASE EVENT DATE: 201711
